FAERS Safety Report 20291826 (Version 1)
Quarter: 2022Q1

REPORT INFORMATION
  Report Type: Spontaneous
  Country: US (occurrence: US)
  Receive Date: 20220104
  Receipt Date: 20220104
  Transmission Date: 20220423
  Serious: No
  Sender: FDA-Public Use
  Company Number: US-ABBVIE-21K-163-3715469-00

PATIENT
  Sex: Male

DRUGS (1)
  1. LUPRON DEPOT [Suspect]
     Active Substance: LEUPROLIDE ACETATE
     Indication: Prostate cancer
     Route: 065

REACTIONS (6)
  - Insomnia [Unknown]
  - Anxiety [Unknown]
  - Depressed mood [Unknown]
  - Tinnitus [Unknown]
  - Abdominal pain upper [Unknown]
  - Headache [Unknown]
